FAERS Safety Report 7355469-X (Version None)
Quarter: 2011Q1

REPORT INFORMATION
  Report Type: 
  Country: None (occurrence: None)
  Receive Date: 20110316
  Receipt Date: 20110302
  Transmission Date: 20110831
  Serious: Yes (Death, Hospitalization, Other)
  Sender: FDA-Public Use
  Company Number: US-ELI_LILLY_AND_COMPANY-US201103000869

PATIENT
  Sex: Male

DRUGS (3)
  1. GEMZAR [Suspect]
     Indication: PANCREATIC CARCINOMA
     Dosage: 2350 MG, UNK
     Dates: start: 20100408, end: 20100513
  2. TARCEVA [Concomitant]
  3. VECTIBIX [Concomitant]

REACTIONS (3)
  - DEATH [None]
  - INTESTINAL PERFORATION [None]
  - NEOPLASM MALIGNANT [None]
